FAERS Safety Report 25852029 (Version 1)
Quarter: 2025Q3

REPORT INFORMATION
  Report Type: Spontaneous
  Country: EU (occurrence: EU)
  Receive Date: 20250926
  Receipt Date: 20250926
  Transmission Date: 20251020
  Serious: Yes (Hospitalization)
  Sender: MYLAN
  Company Number: EU-MYLANLABS-2025M1081199

PATIENT
  Age: 18 Year
  Sex: Male

DRUGS (12)
  1. DIAZEPAM [Suspect]
     Active Substance: DIAZEPAM
     Indication: Status epilepticus
  2. DIAZEPAM [Suspect]
     Active Substance: DIAZEPAM
     Route: 042
  3. DIAZEPAM [Suspect]
     Active Substance: DIAZEPAM
     Route: 042
  4. DIAZEPAM [Suspect]
     Active Substance: DIAZEPAM
  5. VALPROIC ACID [Concomitant]
     Active Substance: VALPROIC ACID
     Indication: Lennox-Gastaut syndrome
     Dosage: 1600 MILLIGRAM, QD
  6. VALPROIC ACID [Concomitant]
     Active Substance: VALPROIC ACID
     Dosage: 1600 MILLIGRAM, QD
     Route: 065
  7. VALPROIC ACID [Concomitant]
     Active Substance: VALPROIC ACID
     Dosage: 1600 MILLIGRAM, QD
     Route: 065
  8. VALPROIC ACID [Concomitant]
     Active Substance: VALPROIC ACID
     Dosage: 1600 MILLIGRAM, QD
  9. CLOBAZAM [Concomitant]
     Active Substance: CLOBAZAM
     Indication: Lennox-Gastaut syndrome
     Dosage: 30 MILLIGRAM, QD
  10. CLOBAZAM [Concomitant]
     Active Substance: CLOBAZAM
     Dosage: 30 MILLIGRAM, QD
     Route: 065
  11. CLOBAZAM [Concomitant]
     Active Substance: CLOBAZAM
     Dosage: 30 MILLIGRAM, QD
     Route: 065
  12. CLOBAZAM [Concomitant]
     Active Substance: CLOBAZAM
     Dosage: 30 MILLIGRAM, QD

REACTIONS (2)
  - Drug ineffective [Unknown]
  - Off label use [Unknown]
